FAERS Safety Report 6901252-6 (Version None)
Quarter: 2010Q3

REPORT INFORMATION
  Report Type: 
  Country: None (occurrence: None)
  Receive Date: 20100803
  Receipt Date: 20100802
  Transmission Date: 20110219
  Serious: Yes (Death)
  Sender: FDA-Public Use
  Company Number: DE-SANOFI-AVENTIS-2010SA042407

PATIENT
  Age: 70 Year
  Sex: Male
  Weight: 105 kg

DRUGS (4)
  1. MULTAQ [Suspect]
     Route: 048
     Dates: start: 20100706, end: 20100710
  2. PENTAERYTHRITOL TETRANITRATE [Concomitant]
     Indication: PRODUCT USED FOR UNKNOWN INDICATION
     Route: 065
     Dates: end: 20100706
  3. RANOLAZINE [Concomitant]
     Indication: PRODUCT USED FOR UNKNOWN INDICATION
     Route: 065
     Dates: end: 20100706
  4. CORONARY VASODILATORS [Concomitant]
     Indication: PRODUCT USED FOR UNKNOWN INDICATION
     Route: 065
     Dates: end: 20100706

REACTIONS (1)
  - CARDIAC DEATH [None]
